FAERS Safety Report 18041543 (Version 2)
Quarter: 2022Q1

REPORT INFORMATION
  Report Type: Spontaneous
  Country: US (occurrence: US)
  Receive Date: 20200720
  Receipt Date: 20220309
  Transmission Date: 20220423
  Serious: Yes (Life-Threatening, Hospitalization, Other)
  Sender: FDA-Public Use
  Company Number: US-SUN PHARMACEUTICAL INDUSTRIES LTD-2019R1-230945

PATIENT
  Age: 33 Year
  Sex: Male

DRUGS (1)
  1. ACETAMINOPHEN [Suspect]
     Active Substance: ACETAMINOPHEN
     Indication: Product used for unknown indication
     Dosage: #50 500 MG ACETAMINOPHEN TABLETS OVER THE PRESEDING 2 DAYS
     Route: 065

REACTIONS (9)
  - Acidosis [Unknown]
  - Hepatotoxicity [Unknown]
  - Toxicity to various agents [Unknown]
  - Tachycardia [Recovering/Resolving]
  - Tachypnoea [Recovering/Resolving]
  - Overdose [Unknown]
  - Hepatic enzyme increased [Unknown]
  - Abdominal pain [Recovering/Resolving]
  - International normalised ratio increased [Unknown]
